FAERS Safety Report 11314852 (Version 2)
Quarter: 2015Q3

REPORT INFORMATION
  Report Type: Spontaneous
  Country: US (occurrence: US)
  Receive Date: 20150727
  Receipt Date: 20150814
  Transmission Date: 20151125
  Serious: Yes (Hospitalization, Other)
  Sender: FDA-Public Use
  Company Number: US-TEVA-581213USA

PATIENT
  Age: 72 Year
  Sex: Male

DRUGS (1)
  1. COPAXONE [Suspect]
     Active Substance: GLATIRAMER ACETATE
     Indication: MULTIPLE SCLEROSIS
     Dosage: FORM STRENGTH UNKNOWN
     Route: 065

REACTIONS (11)
  - Demyelination [Unknown]
  - Pyrexia [Recovered/Resolved]
  - Normal pressure hydrocephalus [Unknown]
  - Cerebral infarction [Unknown]
  - Ataxia [Recovered/Resolved]
  - Arthralgia [Unknown]
  - Paralysis [Recovered/Resolved]
  - Urticaria [Recovered/Resolved]
  - Bipolar disorder [Unknown]
  - Antipsychotic drug level below therapeutic [Unknown]
  - Fatigue [Recovered/Resolved]

NARRATIVE: CASE EVENT DATE: 20150615
